FAERS Safety Report 5301559-2 (Version None)
Quarter: 2007Q2

REPORT INFORMATION
  Report Type: 
  Country: None (occurrence: None)
  Receive Date: 20070412
  Receipt Date: 20070329
  Transmission Date: 20071010
  Serious: Yes (Death, Other)
  Sender: FDA-Public Use
  Company Number: 2007SP006164

PATIENT
  Age: 61 Year
  Sex: Female

DRUGS (2)
  1. PEG-INTRON [Suspect]
     Indication: HEPATITIS C
     Dosage: 1 MCG/KG/QW
  2. REBETOL [Suspect]
     Indication: HEPATITIS C
     Dosage: QD

REACTIONS (4)
  - AUTOIMMUNE HEPATITIS [None]
  - COMPLICATIONS OF TRANSPLANTED LIVER [None]
  - HEPATIC FAILURE [None]
  - HEPATITIS CHOLESTATIC [None]
